FAERS Safety Report 6442863-4 (Version None)
Quarter: 2009Q4

REPORT INFORMATION
  Report Type: 
  Country: None (occurrence: None)
  Receive Date: 20091113
  Receipt Date: 20091103
  Transmission Date: 20100525
  Serious: Yes (Other)
  Sender: FDA-Public Use
  Company Number: B0603113A

PATIENT
  Age: 59 Year
  Sex: Female

DRUGS (3)
  1. MELPHALAN HYDROCHLORIDE [Suspect]
     Indication: ACUTE MYELOID LEUKAEMIA
  2. BUSULPHAN (FORMULATION UNKNOWN) (GENERIC) (BUSULFAN) [Suspect]
     Indication: ACUTE MYELOID LEUKAEMIA
  3. FLUDARABINE PHOSPHATE [Suspect]
     Indication: ACUTE MYELOID LEUKAEMIA

REACTIONS (5)
  - CYSTITIS HAEMORRHAGIC [None]
  - CYTOMEGALOVIRUS INFECTION [None]
  - NEUTROPENIA [None]
  - OBSTRUCTIVE UROPATHY [None]
  - RENAL FAILURE [None]
